FAERS Safety Report 6669737-8 (Version None)
Quarter: 2010Q2

REPORT INFORMATION
  Report Type: 
  Country: None (occurrence: None)
  Receive Date: 20100402
  Receipt Date: 20100326
  Transmission Date: 20101027
  Serious: Yes (Other)
  Sender: FDA-Public Use
  Company Number: 230044M10GBR

PATIENT

DRUGS (1)
  1. REBIF [Suspect]

REACTIONS (2)
  - HYPERTENSION [None]
  - RENAL FAILURE [None]
